FAERS Safety Report 13993555 (Version 1)
Quarter: 2017Q3

REPORT INFORMATION
  Report Type: Spontaneous
  Country: US (occurrence: US)
  Receive Date: 20170920
  Receipt Date: 20170920
  Transmission Date: 20171128
  Serious: Yes (Hospitalization, Other)
  Sender: FDA-Public Use
  Company Number: US-SAOL THERAPEUTICS-2017SAO01461

PATIENT
  Age: 26 Year
  Sex: Male
  Weight: 107.48 kg

DRUGS (10)
  1. GAMMAGARD [Concomitant]
     Active Substance: HUMAN IMMUNOGLOBULIN G
     Dosage: 1 DOSAGE UNITS, 1X/WEEK
  2. LOVAZA [Concomitant]
     Active Substance: OMEGA-3-ACID ETHYL ESTERS
  3. NORVASC [Concomitant]
     Active Substance: AMLODIPINE BESYLATE
  4. INDERAL [Concomitant]
     Active Substance: PROPRANOLOL HYDROCHLORIDE
  5. LIORESAL [Suspect]
     Active Substance: BACLOFEN
     Dosage: 199.87 ?G, \DAY
     Dates: start: 20170906
  6. VALIUM [Concomitant]
     Active Substance: DIAZEPAM
  7. DILAUDID [Concomitant]
     Active Substance: HYDROMORPHONE HYDROCHLORIDE
  8. XANAX [Concomitant]
     Active Substance: ALPRAZOLAM
  9. LIORESAL [Suspect]
     Active Substance: BACLOFEN
     Indication: MUSCLE SPASTICITY
     Dosage: 1200 ?G, \DAY
     Route: 037
     Dates: start: 2012
  10. LIORESAL [Suspect]
     Active Substance: BACLOFEN
     Indication: SPINAL CORD INJURY
     Dosage: 1270.2 ?G, \DAY
     Dates: start: 2012, end: 20170905

REACTIONS (5)
  - Gait inability [Recovering/Resolving]
  - Sepsis [Unknown]
  - Infusion site infection [Recovering/Resolving]
  - Drug dose omission [Recovered/Resolved]
  - Staphylococcal infection [Recovering/Resolving]

NARRATIVE: CASE EVENT DATE: 201706
